FAERS Safety Report 11225685 (Version 1)
Quarter: 2015Q2

REPORT INFORMATION
  Report Type: Spontaneous
  Country: KR (occurrence: KR)
  Receive Date: 20150629
  Receipt Date: 20150629
  Transmission Date: 20150821
  Serious: Yes (Other)
  Sender: FDA-Public Use
  Company Number: PHHY2015KR077517

PATIENT
  Age: 74 Year
  Sex: Female

DRUGS (5)
  1. DIAZEPAM. [Suspect]
     Active Substance: DIAZEPAM
     Indication: INSOMNIA
     Dosage: 2 MG, UNK
     Route: 065
  2. ALPRAZOLAM. [Suspect]
     Active Substance: ALPRAZOLAM
     Indication: INSOMNIA
     Dosage: 0.25 MG, UNK
     Route: 065
  3. BUPROPION [Suspect]
     Active Substance: BUPROPION
     Indication: INSOMNIA
     Dosage: 300 MG, UNK
     Route: 065
  4. IMIPRAMINE [Suspect]
     Active Substance: IMIPRAMINE
     Indication: INSOMNIA
     Dosage: 12.5 MG, UNK
     Route: 065
  5. TIANEPTINE SODIUM [Suspect]
     Active Substance: TIANEPTINE SODIUM
     Indication: INSOMNIA
     Dosage: 12.5 MG, UNK
     Route: 065

REACTIONS (3)
  - Parkinsonism [Recovered/Resolved]
  - Gait disturbance [Recovered/Resolved]
  - Postural tremor [Recovered/Resolved]
